FAERS Safety Report 9302891 (Version 1)
Quarter: 2013Q2

REPORT INFORMATION
  Report Type: Spontaneous
  Country: US (occurrence: US)
  Receive Date: 20130522
  Receipt Date: 20130522
  Transmission Date: 20140414
  Serious: Yes (Death)
  Sender: FDA-Public Use
  Company Number: US-MYLANLABS-2013S1010198

PATIENT
  Age: 6 Decade
  Sex: Female

DRUGS (3)
  1. TAXOTERE [Suspect]
     Indication: BREAST CANCER STAGE III
     Route: 065
  2. EPIRUBICIN [Suspect]
     Indication: BREAST CANCER STAGE III
     Route: 065
  3. CYCLOPHOSPHAMIDE [Suspect]
     Indication: BREAST CANCER STAGE III
     Route: 065

REACTIONS (2)
  - Hepatitis B [Fatal]
  - Acute hepatitis B [Fatal]
